FAERS Safety Report 4474318-0 (Version None)
Quarter: 2004Q4

REPORT INFORMATION
  Report Type: 
  Country: None (occurrence: None)
  Receive Date: 20041014
  Receipt Date: 20041011
  Transmission Date: 20050328
  Serious: Yes (Hospitalization)
  Sender: FDA-Public Use
  Company Number: IT-SOLVAY-00204003646

PATIENT
  Age: 34 Year
  Sex: Male

DRUGS (1)
  1. 5-ASA (MANUFACTURER UNKNOWN) [Suspect]
     Indication: CROHN'S DISEASE
     Dosage: DAILY DOSE:  UNKNOWN
     Route: 048
     Dates: start: 19910101

REACTIONS (1)
  - DISTAL ILEAL OBSTRUCTION SYNDROME [None]
